FAERS Safety Report 5957013-8 (Version None)
Quarter: 2008Q4

REPORT INFORMATION
  Report Type: 
  Country: None (occurrence: None)
  Receive Date: 20081118
  Receipt Date: 20080828
  Transmission Date: 20090506
  Serious: No
  Sender: FDA-Public Use
  Company Number: A0744930A

PATIENT
  Age: 71 Year
  Sex: Female

DRUGS (5)
  1. COREG CR [Suspect]
     Dosage: 10MG PER DAY
     Route: 048
  2. TRIAVIL [Concomitant]
  3. XANAX [Concomitant]
  4. ALTACE [Concomitant]
  5. HEART MEDICATION [Concomitant]

REACTIONS (3)
  - FEELING ABNORMAL [None]
  - LISTLESS [None]
  - MENTAL IMPAIRMENT [None]
